FAERS Safety Report 8090702-0 (Version None)
Quarter: 2012Q1

REPORT INFORMATION
  Report Type: 
  Country: None (occurrence: None)
  Receive Date: 20120130
  Receipt Date: 20120119
  Transmission Date: 20120608
  Serious: Yes (Other)
  Sender: FDA-Public Use
  Company Number: US-MERCK-1201USA02728

PATIENT
  Age: 84 Year
  Sex: Female

DRUGS (2)
  1. METOPROLOL [Concomitant]
     Route: 065
  2. PRINZIDE [Suspect]
     Indication: BLOOD PRESSURE
     Route: 048

REACTIONS (1)
  - HYPERTENSION [None]
